FAERS Safety Report 10503350 (Version 2)
Quarter: 2014Q4

REPORT INFORMATION
  Report Type: Spontaneous
  Country: US (occurrence: US)
  Receive Date: 20141008
  Receipt Date: 20141215
  Transmission Date: 20150528
  Serious: Yes (Death)
  Sender: FDA-Public Use
  Company Number: US-UCBSA-2014013164

PATIENT
  Age: 90 Year
  Sex: Female

DRUGS (1)
  1. APO LEVETIRACETAM [Suspect]
     Active Substance: LEVETIRACETAM
     Indication: SEIZURE
     Dosage: 500MG/3DAY
     Dates: start: 20140309, end: 20140913

REACTIONS (1)
  - Death [Fatal]

NARRATIVE: CASE EVENT DATE: 20140913
